FAERS Safety Report 4979694-8 (Version None)
Quarter: 2006Q2

REPORT INFORMATION
  Report Type: 
  Country: None (occurrence: None)
  Receive Date: 20060418
  Receipt Date: 20060410
  Transmission Date: 20061013
  Serious: Yes (Disabling, Other)
  Sender: FDA-Public Use
  Company Number: 200510853BVD

PATIENT
  Age: 68 Year
  Sex: Male

DRUGS (2)
  1. LEVITRA [Suspect]
     Indication: ERECTILE DYSFUNCTION
     Dosage: 5 MG, ORAL
     Route: 048
     Dates: start: 20050401
  2. LAMISIL [Concomitant]

REACTIONS (4)
  - BLINDNESS UNILATERAL [None]
  - CAROTID ARTERY ATHEROMA [None]
  - OCULAR VASCULAR DISORDER [None]
  - THERAPY NON-RESPONDER [None]
